FAERS Safety Report 9234160 (Version 3)
Quarter: 2013Q2

REPORT INFORMATION
  Report Type: Spontaneous
  Country: US (occurrence: US)
  Receive Date: 20130416
  Receipt Date: 20130508
  Transmission Date: 20140414
  Serious: Yes (Hospitalization, Other)
  Sender: FDA-Public Use
  Company Number: US-BAYER-2013-046182

PATIENT
  Age: 48 Year
  Sex: Female
  Weight: 158.73 kg

DRUGS (1)
  1. MAGNEVIST [Suspect]
     Dosage: 20 ML, ONCE

REACTIONS (1)
  - Obstructive airways disorder [None]
